FAERS Safety Report 24218193 (Version 2)
Quarter: 2024Q4

REPORT INFORMATION
  Report Type: Spontaneous
  Country: US (occurrence: US)
  Receive Date: 20240816
  Receipt Date: 20241007
  Transmission Date: 20250115
  Serious: Yes (Disabling, Other)
  Sender: PFIZER
  Company Number: US-PFIZER INC-202400235087

PATIENT
  Sex: Female

DRUGS (1)
  1. ADCETRIS [Suspect]
     Active Substance: BRENTUXIMAB VEDOTIN
     Indication: Hodgkin^s disease
     Dosage: 1.2 MG/KG, FOUR CYCLES
     Route: 042
     Dates: start: 2024

REACTIONS (1)
  - Peripheral motor neuropathy [Not Recovered/Not Resolved]
